FAERS Safety Report 18728465 (Version 1)
Quarter: 2021Q1

REPORT INFORMATION
  Report Type: Spontaneous
  Country: US (occurrence: US)
  Receive Date: 20210112
  Receipt Date: 20210112
  Transmission Date: 20210419
  Serious: Yes (Hospitalization)
  Sender: FDA-Public Use
  Company Number: US-LUPIN PHARMACEUTICALS INC.-2020-11651

PATIENT
  Age: 59 Year
  Sex: Female

DRUGS (5)
  1. PREDNISONE ACETATE [Suspect]
     Active Substance: PREDNISONE ACETATE
     Dosage: UNK (DOSE DECREASED)
     Route: 065
  2. METHIMAZOLE. [Suspect]
     Active Substance: METHIMAZOLE
     Indication: HYPERTHYROIDISM
     Dosage: 80 MILLIGRAM, UNK
     Route: 065
  3. COLESTYRAMINE [Suspect]
     Active Substance: CHOLESTYRAMINE
     Indication: HYPERTHYROIDISM
     Dosage: 12 GRAM (UPTO 12 GRAM)
     Route: 065
  4. POTASSIUM [Suspect]
     Active Substance: POTASSIUM
     Indication: HYPERTHYROIDISM
     Dosage: UNK (DROPS)
     Route: 065
  5. PREDNISONE ACETATE [Suspect]
     Active Substance: PREDNISONE ACETATE
     Indication: HYPERTHYROIDISM
     Dosage: 60 MILLIGRAM, UNK
     Route: 065

REACTIONS (1)
  - Drug ineffective [Unknown]
